FAERS Safety Report 6020750-3 (Version None)
Quarter: 2008Q4

REPORT INFORMATION
  Report Type: 
  Country: None (occurrence: None)
  Receive Date: 20081229
  Receipt Date: 20081216
  Transmission Date: 20090506
  Serious: Yes (Other)
  Sender: FDA-Public Use
  Company Number: PHHY2008DE23310

PATIENT
  Age: 61 Year
  Sex: Female

DRUGS (2)
  1. PROVAS [Suspect]
     Indication: HYPERTENSION
     Dosage: 320 MG, UNK
  2. INFLUENZA VACCINE [Interacting]
     Dosage: UNK
     Dates: start: 20080901

REACTIONS (4)
  - BLOOD PRESSURE DECREASED [None]
  - CARDIOVASCULAR INSUFFICIENCY [None]
  - DRUG INTERACTION [None]
  - FATIGUE [None]
